FAERS Safety Report 6415048-5 (Version None)
Quarter: 2009Q4

REPORT INFORMATION
  Report Type: 
  Country: None (occurrence: None)
  Receive Date: 20091021
  Receipt Date: 20091009
  Transmission Date: 20100525
  Serious: Yes (Hospitalization)
  Sender: FDA-Public Use
  Company Number: 8051293

PATIENT
  Age: 72 Year
  Sex: Female
  Weight: 103.2 kg

DRUGS (14)
  1. CIMZIA [Suspect]
     Indication: RHEUMATOID ARTHRITIS
     Dosage: SC
     Route: 058
     Dates: start: 20090707, end: 20090827
  2. PLACEBO [Suspect]
     Indication: RHEUMATOID ARTHRITIS
     Dates: start: 20090707
  3. PRILOSEC [Concomitant]
  4. ADVAIR DISKUS 100/50 [Concomitant]
  5. SPIRIVA [Concomitant]
  6. PROVENTTL [Concomitant]
  7. METHOTREXATE [Concomitant]
  8. ZOCOR [Concomitant]
  9. FOLIC ACID [Concomitant]
  10. SPECTRUM [Concomitant]
  11. ASPIRIN [Concomitant]
  12. NYSTATIN [Concomitant]
  13. MULTIVITAMIN [Concomitant]
  14. SIMVASTATIN [Concomitant]

REACTIONS (1)
  - PNEUMONIA [None]
